FAERS Safety Report 8210955-5 (Version None)
Quarter: 2012Q1

REPORT INFORMATION
  Report Type: 
  Country: None (occurrence: None)
  Receive Date: 20120229
  Receipt Date: 20111129
  Transmission Date: 20120608
  Serious: Yes (Other)
  Sender: FDA-Public Use
  Company Number: PHEH2011US010529

PATIENT
  Age: 57 Year
  Sex: Male
  Weight: 90.7 kg

DRUGS (3)
  1. CLONIDINE [Concomitant]
  2. METFORMIN HCL [Concomitant]
  3. EXFORGE HCT [Suspect]
     Indication: HYPERTENSION
     Dosage: 1 DF, QD (320/10/25 MG)
     Dates: start: 20111028, end: 20111110

REACTIONS (4)
  - PRURITUS [None]
  - URTICARIA [None]
  - SWELLING FACE [None]
  - HYPERSENSITIVITY [None]
